FAERS Safety Report 7596660-7 (Version None)
Quarter: 2011Q3

REPORT INFORMATION
  Report Type: 
  Country: None (occurrence: None)
  Receive Date: 20110708
  Receipt Date: 20110701
  Transmission Date: 20111222
  Serious: Yes (Death, Hospitalization)
  Sender: FDA-Public Use
  Company Number: AR-AMGEN-ARGSP2011029062

PATIENT
  Age: 58 Year
  Sex: Female
  Weight: 56 kg

DRUGS (1)
  1. ENBREL [Suspect]
     Indication: RHEUMATOID ARTHRITIS
     Dosage: 25 MG, 2X/WEEK
     Route: 058
     Dates: start: 20060101, end: 20110401

REACTIONS (6)
  - RHEUMATOID ARTHRITIS [None]
  - SEPSIS [None]
  - PNEUMONIA [None]
  - URINARY TRACT INFECTION [None]
  - CARDIO-RESPIRATORY ARREST [None]
  - KNEE ARTHROPLASTY [None]
